FAERS Safety Report 25938059 (Version 1)
Quarter: 2025Q4

REPORT INFORMATION
  Report Type: Spontaneous
  Country: GB (occurrence: GB)
  Receive Date: 20251018
  Receipt Date: 20251018
  Transmission Date: 20260119
  Serious: Yes (Other)
  Sender: ACCORD
  Company Number: None

PATIENT
  Sex: Female

DRUGS (6)
  1. IRINOTECAN [Suspect]
     Active Substance: IRINOTECAN
     Indication: Colon cancer
     Dosage: 164MG - IV INFUSION
  2. FOSAPREPITANT [Concomitant]
     Active Substance: FOSAPREPITANT
  3. DEXAMETHASONE [Concomitant]
     Active Substance: DEXAMETHASONE
  4. ATROPINE [Concomitant]
     Active Substance: ATROPINE
  5. FLUOROURACIL [Concomitant]
     Active Substance: FLUOROURACIL
  6. PEGFILGRASTIM [Concomitant]
     Active Substance: PEGFILGRASTIM

REACTIONS (3)
  - Neuropathy peripheral [Unknown]
  - Paraesthesia [Unknown]
  - Contusion [Unknown]

NARRATIVE: CASE EVENT DATE: 20251008
